FAERS Safety Report 9466150 (Version 1)
Quarter: 2013Q3

REPORT INFORMATION
  Report Type: Spontaneous
  Country: US (occurrence: None)
  Receive Date: 20130816
  Receipt Date: 20130816
  Transmission Date: 20140515
  Serious: Yes (Life-Threatening, Hospitalization, Disabling)
  Sender: FDA-Public Use
  Company Number: None

PATIENT
  Age: 70 Year
  Sex: Female
  Weight: 74.84 kg

DRUGS (1)
  1. ENALAPRIL [Suspect]
     Indication: HYPERTENSION
     Dosage: TWICE DAILY  TAKEN BY MOUTH
     Route: 048
     Dates: start: 20130114, end: 20130116

REACTIONS (2)
  - Myocardial infarction [None]
  - Cardiac failure congestive [None]
